FAERS Safety Report 4437794-5 (Version None)
Quarter: 2004Q3

REPORT INFORMATION
  Report Type: 
  Country: None (occurrence: None)
  Receive Date: 20040827
  Receipt Date: 20040817
  Transmission Date: 20050211
  Serious: Yes (Congenital Anomaly)
  Sender: FDA-Public Use
  Company Number: 04P-044-0261437-00

PATIENT
  Age: 24 Month
  Sex: Male

DRUGS (2)
  1. MAVIK [Suspect]
  2. ETHANOL [Suspect]

REACTIONS (3)
  - DEVELOPMENTAL DELAY [None]
  - DRUG EXPOSURE DURING PREGNANCY [None]
  - SKULL MALFORMATION [None]
